FAERS Safety Report 19175640 (Version 1)
Quarter: 2021Q2

REPORT INFORMATION
  Report Type: Spontaneous
  Country: US (occurrence: US)
  Receive Date: 20210423
  Receipt Date: 20210423
  Transmission Date: 20210717
  Serious: Yes (Other)
  Sender: FDA-Public Use
  Company Number: US-JNJFOC-20210428800

PATIENT
  Sex: Female

DRUGS (1)
  1. IMODIUM MULTI?SYMPTOM RELIEF [Suspect]
     Active Substance: DIMETHICONE\LOPERAMIDE HYDROCHLORIDE
     Indication: PRODUCT USED FOR UNKNOWN INDICATION
     Dosage: TWICE A DAY, ONE CAPLETS EACH DOSE ONLY 1 BEFORE EACH MEAL, I TAKE TWO A DAY, I HAD A HARD TIME URIN
     Route: 048

REACTIONS (2)
  - Pruritus [Recovered/Resolved]
  - Urinary retention [Not Recovered/Not Resolved]
